FAERS Safety Report 15058478 (Version 3)
Quarter: 2018Q3

REPORT INFORMATION
  Report Type: Spontaneous
  Country: US (occurrence: US)
  Receive Date: 20180625
  Receipt Date: 20180706
  Transmission Date: 20181010
  Serious: Yes (Hospitalization, Other)
  Sender: FDA-Public Use
  Company Number: US-GLENMARK PHARMACEUTICALS-2018GMK036199

PATIENT
  Age: 71 Year
  Sex: Male
  Weight: 90.7 kg

DRUGS (4)
  1. LIDOCAINE. [Interacting]
     Active Substance: LIDOCAINE
     Dosage: 4 MG, CONTINUOUS INFUSION: 30 MINUTES
     Route: 042
  2. LIDOCAINE. [Interacting]
     Active Substance: LIDOCAINE
     Dosage: 2 MG, CONTINUOUS INFUSION
     Route: 042
  3. LIDOCAINE. [Suspect]
     Active Substance: LIDOCAINE
     Indication: VENTRICULAR TACHYCARDIA
     Dosage: 90 MG, BOLUS, (1 MG/KG) ROUGHLY 30 MINUTES
     Route: 042
  4. MEXILETINE [Interacting]
     Active Substance: MEXILETINE
     Indication: PRODUCT USED FOR UNKNOWN INDICATION
     Dosage: 150 MG, TID (EVERY 8 HOURS), SINGLE AFTERNOON DOSE
     Route: 042

REACTIONS (12)
  - Drug interaction [Unknown]
  - Amnesia [Unknown]
  - Neurotoxicity [Unknown]
  - Mental status changes [Recovering/Resolving]
  - Dysarthria [Recovering/Resolving]
  - Electroencephalogram abnormal [Unknown]
  - Incorrect drug administration duration [Unknown]
  - Delirium [Recovering/Resolving]
  - Toxicity to various agents [Unknown]
  - Drug level increased [Unknown]
  - Tremor [Recovering/Resolving]
  - Confusional state [Recovering/Resolving]
